FAERS Safety Report 24021636 (Version 1)
Quarter: 2024Q2

REPORT INFORMATION
  Report Type: Spontaneous
  Country: US (occurrence: US)
  Receive Date: 20240627
  Receipt Date: 20240627
  Transmission Date: 20240716
  Serious: No
  Sender: FDA-Public Use
  Company Number: US-ROCHE-3520595

PATIENT
  Age: 78 Year
  Sex: Female

DRUGS (4)
  1. VABYSMO [Suspect]
     Active Substance: FARICIMAB\FARICIMAB-SVOA
     Indication: Neovascular age-related macular degeneration
     Route: 065
  2. CEFTAZIDIME [Concomitant]
     Active Substance: CEFTAZIDIME
     Route: 042
  3. VANCOMYCIN [Concomitant]
     Active Substance: VANCOMYCIN
     Route: 065
  4. PREDNISOLONE [Concomitant]
     Active Substance: PREDNISOLONE
     Route: 061

REACTIONS (9)
  - Pain [Unknown]
  - Photosensitivity reaction [Unknown]
  - Visual impairment [Unknown]
  - Visual acuity reduced [Unknown]
  - Hypopyon [Unknown]
  - Vitreal cells [Unknown]
  - Retinal haemorrhage [Unknown]
  - Anterior chamber inflammation [Unknown]
  - Vitreous floaters [Unknown]
